FAERS Safety Report 9057808 (Version 1)
Quarter: 2013Q1

REPORT INFORMATION
  Report Type: Spontaneous
  Country: FR (occurrence: FR)
  Receive Date: 20130204
  Receipt Date: 20130204
  Transmission Date: 20140127
  Serious: Yes (Other)
  Sender: FDA-Public Use
  Company Number: FR-ASTRAZENECA-2013SE06968

PATIENT
  Age: 10 Month
  Sex: Female

DRUGS (1)
  1. SYNAGIS [Suspect]
     Dosage: TOTAL OF FOUR INJECTIONS
     Route: 030

REACTIONS (4)
  - Bronchiolitis [Unknown]
  - Nasopharyngitis [Unknown]
  - Decreased appetite [Unknown]
  - Ear infection [Unknown]
